FAERS Safety Report 20676838 (Version 2)
Quarter: 2022Q2

REPORT INFORMATION
  Report Type: Spontaneous
  Country: US (occurrence: US)
  Receive Date: 20220406
  Receipt Date: 20220410
  Transmission Date: 20220720
  Serious: No
  Sender: FDA-Public Use
  Company Number: US-CELGENE-USA-20200306385

PATIENT
  Age: 45 Year
  Sex: Female

DRUGS (3)
  1. OTEZLA [Suspect]
     Active Substance: APREMILAST
     Indication: Psoriasis
     Dosage: STARTER PACK
     Route: 048
     Dates: start: 202002
  2. OTEZLA [Suspect]
     Active Substance: APREMILAST
     Dosage: DAY 6 OF STARTER PACK
     Route: 048
     Dates: start: 202003
  3. OTEZLA [Suspect]
     Active Substance: APREMILAST
     Dosage: 30 MILLIGRAM, BID
     Route: 048
     Dates: start: 20200318

REACTIONS (2)
  - Influenza [Unknown]
  - Headache [Unknown]

NARRATIVE: CASE EVENT DATE: 20200201
